FAERS Safety Report 18814684 (Version 1)
Quarter: 2021Q1

REPORT INFORMATION
  Report Type: Spontaneous
  Country: FR (occurrence: FR)
  Receive Date: 20210201
  Receipt Date: 20210201
  Transmission Date: 20210419
  Serious: Yes (Other)
  Sender: FDA-Public Use
  Company Number: FR-ELI_LILLY_AND_COMPANY-FR202101011071

PATIENT
  Age: 92 Year
  Sex: Female
  Weight: 65 kg

DRUGS (1)
  1. ZYPREXA [Suspect]
     Active Substance: OLANZAPINE
     Indication: MANIA
     Dosage: 5 MG, DAILY
     Route: 048
     Dates: start: 20201201, end: 20201207

REACTIONS (2)
  - Hypokalaemia [Recovered/Resolved]
  - Ketoacidosis [Recovered/Resolved]

NARRATIVE: CASE EVENT DATE: 20201206
